FAERS Safety Report 6712134-7 (Version None)
Quarter: 2010Q2

REPORT INFORMATION
  Report Type: 
  Country: None (occurrence: None)
  Receive Date: 20100505
  Receipt Date: 20100422
  Transmission Date: 20101027
  Serious: Yes (Hospitalization, Other)
  Sender: FDA-Public Use
  Company Number: US-ELI_LILLY_AND_COMPANY-US201004007098

PATIENT
  Sex: Female

DRUGS (8)
  1. FORTEO [Suspect]
     Indication: OSTEOPOROSIS
     Dosage: 20 UG, DAILY (1/D)
     Dates: start: 20090101
  2. COGENTIN [Concomitant]
     Dosage: 1 MG, 2/D
  3. RISPERDAL [Concomitant]
     Dosage: 2 MG, 2/D
  4. TRAZODONE HCL [Concomitant]
     Dosage: 50 MG, EACH EVENING
  5. ZOCOR [Concomitant]
     Dosage: 20 MG, EACH EVENING
  6. LEVOTHYROX [Concomitant]
     Dosage: 0.05 D/F, EACH MORNING BEFORE BREAKFAST
  7. EFFEXOR XR [Concomitant]
     Dosage: 75 D/F, DAILY (1/D)
  8. NORVASC [Concomitant]
     Dosage: 5 MG, DAILY (1/D)

REACTIONS (3)
  - AGGRESSION [None]
  - HOMICIDAL IDEATION [None]
  - SUICIDAL IDEATION [None]
